FAERS Safety Report 24400115 (Version 2)
Quarter: 2025Q3

REPORT INFORMATION
  Report Type: Spontaneous
  Country: CA (occurrence: CA)
  Receive Date: 20241005
  Receipt Date: 20250809
  Transmission Date: 20251021
  Serious: Yes (Hospitalization, Other)
  Sender: ALEXION PHARMACEUTICALS
  Company Number: CA-AstraZeneca-CH-00715399A

PATIENT
  Sex: Female

DRUGS (1)
  1. ROFLUMILAST [Suspect]
     Active Substance: ROFLUMILAST
     Indication: Chronic obstructive pulmonary disease
     Dosage: 500 MICROGRAM, QD
     Dates: start: 20240927

REACTIONS (2)
  - Chronic obstructive pulmonary disease [Unknown]
  - Hypercapnia [Unknown]
